FAERS Safety Report 7272483-3 (Version None)
Quarter: 2011Q1

REPORT INFORMATION
  Report Type: 
  Country: None (occurrence: None)
  Receive Date: 20110203
  Receipt Date: 20110128
  Transmission Date: 20110831
  Serious: Yes (Death, Other)
  Sender: FDA-Public Use
  Company Number: JP-ROCHE-673045

PATIENT
  Sex: Female
  Weight: 43 kg

DRUGS (41)
  1. TOCILIZUMAB [Suspect]
     Route: 041
     Dates: start: 20081212, end: 20081212
  2. METOLATE [Concomitant]
     Route: 048
     Dates: end: 20090101
  3. KLARICID [Concomitant]
     Dosage: FORM: PERORAL AGENT
     Route: 048
     Dates: end: 20090101
  4. PREDNISOLONE [Concomitant]
     Dosage: DRUG REPORTED AS:PREDOHAN
     Route: 048
     Dates: start: 20090101, end: 20091008
  5. TOCILIZUMAB [Suspect]
     Route: 041
     Dates: start: 20090618, end: 20090618
  6. BENET [Concomitant]
     Route: 048
     Dates: end: 20091126
  7. HIRUDOID [Concomitant]
     Route: 061
     Dates: end: 20090101
  8. KETOPROFEN [Concomitant]
     Dosage: DRUG REPORTED:SECTOR:LOTION
     Route: 061
     Dates: end: 20090101
  9. BASEN [Concomitant]
     Route: 048
     Dates: end: 20090101
  10. TOCILIZUMAB [Suspect]
     Route: 041
     Dates: start: 20090101, end: 20090101
  11. TOCILIZUMAB [Suspect]
     Route: 041
     Dates: start: 20090326, end: 20090326
  12. TOCILIZUMAB [Suspect]
     Route: 041
     Dates: start: 20090924, end: 20090924
  13. TOCILIZUMAB [Suspect]
     Route: 041
     Dates: start: 20091022, end: 20091022
  14. PREDONINE [Concomitant]
     Route: 048
     Dates: start: 20081029, end: 20090101
  15. MEVALOTIN [Concomitant]
     Dosage: FORM: PERORAL AGENT
     Route: 048
     Dates: end: 20090101
  16. CELCOX [Concomitant]
     Dosage: DRUG: CERECOX
     Route: 048
     Dates: start: 20090101, end: 20091126
  17. TOCILIZUMAB [Suspect]
     Route: 041
     Dates: start: 20080704, end: 20080704
  18. TOCILIZUMAB [Suspect]
     Route: 041
     Dates: start: 20081121, end: 20081121
  19. CYTOTEC [Concomitant]
     Route: 048
     Dates: end: 20090101
  20. MAGLAX [Concomitant]
     Dosage: FORM: PERORAL AGENT
     Route: 048
     Dates: end: 20090101
  21. FOLIAMIN [Concomitant]
     Dosage: FORM: PERORAL AGENT
     Route: 048
     Dates: end: 20090101
  22. GLYCORAN [Concomitant]
     Route: 048
     Dates: end: 20090101
  23. TOCILIZUMAB [Suspect]
     Route: 041
     Dates: start: 20081024, end: 20081024
  24. PREDONINE [Concomitant]
     Route: 048
     Dates: start: 20090101, end: 20091126
  25. PARIET [Concomitant]
     Route: 048
     Dates: end: 20091126
  26. BUP-4 [Concomitant]
     Dosage: FORM: PERORAL AGENT
     Route: 048
     Dates: end: 20090101
  27. FELBINAC [Concomitant]
     Dosage: FORM: TAPE. DRUG REPORTED AS:SELTOUCH
     Route: 061
     Dates: end: 20090101
  28. GASLON N [Concomitant]
     Dosage: FORM: PERORAL AGENT
     Route: 048
     Dates: start: 20090101, end: 20091008
  29. TOCILIZUMAB [Suspect]
     Route: 041
     Dates: start: 20090716, end: 20090716
  30. TOCILIZUMAB [Suspect]
     Route: 041
     Dates: start: 20090813, end: 20090813
  31. PREDONINE [Concomitant]
     Dosage: DOSE FORM: PERORAL AGENT
     Route: 048
     Dates: end: 20081028
  32. PREDNISOLONE [Concomitant]
     Route: 048
     Dates: start: 20081029, end: 20090101
  33. AZULFIDINE [Concomitant]
     Route: 048
     Dates: start: 20090101, end: 20091008
  34. LAC B [Concomitant]
     Dosage: FORM: PERORAL AGENT
     Route: 048
     Dates: start: 20090101, end: 20091008
  35. TOCILIZUMAB [Suspect]
     Route: 041
     Dates: start: 20080801, end: 20080801
  36. TOCILIZUMAB [Suspect]
     Route: 041
     Dates: start: 20090424, end: 20090424
  37. PENTAZOCINE LACTATE [Concomitant]
     Route: 048
     Dates: start: 20090101, end: 20091126
  38. TOCILIZUMAB [Suspect]
     Indication: RHEUMATOID ARTHRITIS
     Route: 041
     Dates: start: 20080530, end: 20080530
  39. TOCILIZUMAB [Suspect]
     Route: 041
     Dates: start: 20080822, end: 20080822
  40. TOCILIZUMAB [Suspect]
     Route: 041
     Dates: start: 20080925, end: 20080925
  41. KETOPROFEN [Concomitant]
     Dosage: FORM: TAPE
     Route: 061
     Dates: end: 20090101

REACTIONS (3)
  - MULTI-ORGAN FAILURE [None]
  - PNEUMONIA [None]
  - ACUTE RESPIRATORY DISTRESS SYNDROME [None]
